FAERS Safety Report 16074939 (Version 2)
Quarter: 2019Q2

REPORT INFORMATION
  Report Type: Report from Study
  Country: None (occurrence: US)
  Receive Date: 20190314
  Receipt Date: 20190410
  Transmission Date: 20190711
  Serious: Yes (Other)
  Sender: FDA-Public Use
  Company Number: US-ABBVIE-19S-163-2700048-00

PATIENT
  Sex: Male
  Weight: 69.46 kg

DRUGS (2)
  1. HUMALOG [Concomitant]
     Active Substance: INSULIN LISPRO
     Indication: TYPE 1 DIABETES MELLITUS
  2. CREON [Suspect]
     Active Substance: PANCRELIPASE AMYLASE\PANCRELIPASE LIPASE\PANCRELIPASE PROTEASE
     Indication: PANCREATIC FAILURE
     Dosage: 10 CAPSULES WITH EVERY MEAL AND TWO CAPSULES WITH EVERY SNACK DAILY.
     Route: 048
     Dates: start: 2014

REACTIONS (12)
  - Pancreatectomy [Unknown]
  - Pancreatic disorder [Recovered/Resolved]
  - Nausea [Unknown]
  - Haematemesis [Recovered/Resolved]
  - Pancreas islet cell transplant [Unknown]
  - Intestinal perforation [Recovered/Resolved]
  - Ulcer [Recovered/Resolved]
  - Abdominal pain [Not Recovered/Not Resolved]
  - Diabetes mellitus inadequate control [Not Recovered/Not Resolved]
  - Pancreatic calcification [Recovered/Resolved]
  - Vomiting [Unknown]
  - Abdominal pain [Recovered/Resolved]

NARRATIVE: CASE EVENT DATE: 2014
